FAERS Safety Report 8180583-9 (Version None)
Quarter: 2012Q1

REPORT INFORMATION
  Report Type: 
  Country: None (occurrence: None)
  Receive Date: 20120301
  Receipt Date: 20120301
  Transmission Date: 20120608
  Serious: No
  Sender: FDA-Public Use
  Company Number: None

PATIENT
  Sex: Female
  Weight: 54.4316 kg

DRUGS (4)
  1. BONIVA [Suspect]
     Indication: OSTEOPOROSIS
     Dosage: 150MG TABLET MONTHLY ORAL
     Route: 048
     Dates: start: 20100101, end: 20101230
  2. BONIVA [Suspect]
     Indication: OSTEOPENIA
     Dosage: 150MG TABLET MONTHLY ORAL
     Route: 048
     Dates: start: 20100101, end: 20101230
  3. BONIVA [Suspect]
     Indication: OSTEOPOROSIS
     Dosage: 150MG TABLET MONTHLY ORAL
     Route: 048
     Dates: start: 20090101
  4. BONIVA [Suspect]
     Indication: OSTEOPENIA
     Dosage: 150MG TABLET MONTHLY ORAL
     Route: 048
     Dates: start: 20090101

REACTIONS (16)
  - PAIN IN JAW [None]
  - MYALGIA [None]
  - PALPITATIONS [None]
  - HEADACHE [None]
  - MUSCULOSKELETAL CHEST PAIN [None]
  - GASTROOESOPHAGEAL REFLUX DISEASE [None]
  - MEMORY IMPAIRMENT [None]
  - MALAISE [None]
  - ANXIETY [None]
  - ARTHRALGIA [None]
  - ASTHENIA [None]
  - DISORIENTATION [None]
  - INFLUENZA LIKE ILLNESS [None]
  - FATIGUE [None]
  - NAUSEA [None]
  - PAIN [None]
